FAERS Safety Report 20413833 (Version 1)
Quarter: 2022Q1

REPORT INFORMATION
  Report Type: Spontaneous
  Country: US (occurrence: US)
  Receive Date: 20220201
  Receipt Date: 20220201
  Transmission Date: 20220423
  Serious: Yes (Other)
  Sender: FDA-Public Use
  Company Number: US-drreddys-SPO/USA/22/0146365

PATIENT
  Age: 14 Year
  Sex: Female

DRUGS (1)
  1. ZENATANE [Suspect]
     Active Substance: ISOTRETINOIN
     Indication: Product used for unknown indication
     Dosage: RMA ISSUE DATE: 03 NOVEMBER 2021 04:19:55 PM, 07 DECEMBER 2021 11:35:55 AM, 08 DECEMBER 2021 09:20:0

REACTIONS (2)
  - Depression [Unknown]
  - Anxiety [Unknown]
